FAERS Safety Report 15222382 (Version 1)
Quarter: 2018Q3

REPORT INFORMATION
  Report Type: Spontaneous
  Country: CO (occurrence: CO)
  Receive Date: 20180731
  Receipt Date: 20180731
  Transmission Date: 20181010
  Serious: Yes (Other)
  Sender: FDA-Public Use
  Company Number: CO-JNJFOC-20180733842

PATIENT
  Age: 65 Year
  Sex: Female
  Weight: 50 kg

DRUGS (1)
  1. REMICADE [Suspect]
     Active Substance: INFLIXIMAB
     Indication: ANKYLOSING SPONDYLITIS
     Route: 042
     Dates: start: 2015

REACTIONS (3)
  - Transaminases increased [Recovered/Resolved]
  - Tuberculosis [Unknown]
  - Respiratory tract infection [Unknown]

NARRATIVE: CASE EVENT DATE: 201709
